FAERS Safety Report 8371973-X (Version None)
Quarter: 2012Q2

REPORT INFORMATION
  Report Type: 
  Country: None (occurrence: None)
  Receive Date: 20120518
  Receipt Date: 20120503
  Transmission Date: 20120825
  Serious: Yes (Other)
  Sender: FDA-Public Use
  Company Number: US-ROCHE-1068532

PATIENT
  Sex: Male

DRUGS (10)
  1. CYCLOBENZAPRINE HCL [Concomitant]
     Dosage: DRUG NAME FLEXOR
  2. FLEXERIL [Concomitant]
  3. KLONOPIN [Concomitant]
     Dates: start: 20110708
  4. ASPIRIN [Concomitant]
  5. VALIUM [Suspect]
     Indication: PRODUCT USED FOR UNKNOWN INDICATION
  6. HYDROCHLOROTHIAZIDE [Concomitant]
  7. CHANTIX [Suspect]
     Indication: PRODUCT USED FOR UNKNOWN INDICATION
  8. RISPERDAL [Concomitant]
  9. LORTAB [Concomitant]
  10. PRILOSEC [Concomitant]

REACTIONS (4)
  - MYOCARDIAL INFARCTION [None]
  - MENTAL DISORDER [None]
  - SUICIDE ATTEMPT [None]
  - PHYSICAL ASSAULT [None]
